FAERS Safety Report 5167909-5 (Version None)
Quarter: 2006Q4

REPORT INFORMATION
  Report Type: 
  Country: None (occurrence: None)
  Receive Date: 20061208
  Receipt Date: 20060322
  Transmission Date: 20070319
  Serious: Yes (Hospitalization)
  Sender: FDA-Public Use
  Company Number: DE-BAYER-200610381BVD

PATIENT
  Age: 45 Year
  Sex: Male
  Weight: 64 kg

DRUGS (3)
  1. SORAFENIB [Suspect]
     Indication: MALIGNANT MELANOMA
     Dosage: TOTAL DAILY DOSE: 800 MG
     Route: 048
  2. PACLITAXEL [Suspect]
     Indication: MALIGNANT MELANOMA
     Route: 042
     Dates: start: 20060321
  3. CARBOPLATIN [Suspect]
     Indication: MALIGNANT MELANOMA
     Dates: start: 20060321

REACTIONS (1)
  - TRANSIENT ISCHAEMIC ATTACK [None]
